FAERS Safety Report 8243603-9 (Version None)
Quarter: 2012Q1

REPORT INFORMATION
  Report Type: 
  Country: None (occurrence: None)
  Receive Date: 20120329
  Receipt Date: 20120321
  Transmission Date: 20120608
  Serious: Yes (Hospitalization, Other)
  Sender: FDA-Public Use
  Company Number: US-BAYER-2011-107418

PATIENT
  Age: 33 Year
  Sex: Female
  Weight: 88.435 kg

DRUGS (7)
  1. CALCIUM CARBONATE [Concomitant]
  2. GLUCOSAMINE [Concomitant]
  3. YAZ [Suspect]
     Indication: MENSTRUAL CYCLE MANAGEMENT
  4. NEXIUM [Concomitant]
     Dosage: 40 MG, UNK
     Route: 048
  5. YAZ [Suspect]
     Indication: CONTRACEPTION
     Dosage: UNK
     Dates: start: 20080315, end: 20081210
  6. NAPROSYN [Concomitant]
     Indication: ARTHRALGIA
     Dosage: 550 MG, UNK
     Route: 048
  7. METFORMIN HCL [Concomitant]
     Indication: WEIGHT DECREASED
     Dosage: 500 MG, UNK
     Route: 048

REACTIONS (6)
  - HAEMATURIA [None]
  - PAIN [None]
  - DEEP VEIN THROMBOSIS [None]
  - HAEMORRHAGIC ANAEMIA [None]
  - OEDEMA PERIPHERAL [None]
  - HAEMOGLOBIN DECREASED [None]
